FAERS Safety Report 4974948-3 (Version None)
Quarter: 2006Q2

REPORT INFORMATION
  Report Type: 
  Country: None (occurrence: None)
  Receive Date: 20060418
  Receipt Date: 20050726
  Transmission Date: 20061013
  Serious: Yes (Death, Other)
  Sender: FDA-Public Use
  Company Number: FR-BRISTOL-MYERS SQUIBB COMPANY-13088547

PATIENT
  Age: 71 Year
  Sex: Male

DRUGS (10)
  1. APROVEL [Suspect]
     Route: 048
  2. COZAAR [Suspect]
  3. PLAVIX [Suspect]
     Indication: TRIPLE VESSEL BYPASS GRAFT
     Dosage: DURATION OF THERAPY:  ^1 YEAR OR 1.5 YEARS^
     Route: 048
  4. TAREG [Suspect]
     Indication: HYPERTENSION
     Route: 048
  5. EUPRESSYL [Suspect]
     Indication: HYPERTENSION
     Dosage: INITIATED AT 120 MG DAILY
     Route: 048
  6. SECTRAL [Concomitant]
  7. AMLOR [Concomitant]
  8. LASILIX [Concomitant]
  9. TAHOR [Concomitant]
  10. FLECAINIDE ACETATE [Concomitant]

REACTIONS (4)
  - ANAEMIA [None]
  - DIZZINESS [None]
  - GINGIVAL BLEEDING [None]
  - RENAL FAILURE ACUTE [None]
